FAERS Safety Report 5474884-2 (Version None)
Quarter: 2007Q3

REPORT INFORMATION
  Report Type: 
  Country: None (occurrence: None)
  Receive Date: 20070928
  Receipt Date: 20070912
  Transmission Date: 20080115
  Serious: Yes (Hospitalization)
  Sender: FDA-Public Use
  Company Number: 2007BI019934

PATIENT
  Age: 55 Year
  Sex: Male

DRUGS (1)
  1. NATALIZUMAB (NATALTZUMAB) [Suspect]
     Indication: MULTIPLE SCLEROSIS
     Dosage: 300 MG; QM; IV
     Route: 042
     Dates: start: 20070516

REACTIONS (1)
  - SPINAL LAMINECTOMY [None]
